FAERS Safety Report 17136589 (Version 6)
Quarter: 2020Q1

REPORT INFORMATION
  Report Type: Spontaneous
  Country: GR (occurrence: GR)
  Receive Date: 20191210
  Receipt Date: 20200310
  Transmission Date: 20200409
  Serious: Yes (Life-Threatening, Hospitalization, Other)
  Sender: FDA-Public Use
  Company Number: NVSC2019GR061268

PATIENT
  Age: 83 Year
  Sex: Female

DRUGS (8)
  1. FUROSEMIDE. [Suspect]
     Active Substance: FUROSEMIDE
     Dosage: 40 MG, 1X/DAY
     Route: 065
  2. ATENOLOL. [Suspect]
     Active Substance: ATENOLOL
     Indication: HYPERTENSION
     Dosage: 50 MG, QD
     Route: 048
  3. ATENOLOL. [Suspect]
     Active Substance: ATENOLOL
     Dosage: 50 MG, 1X/DAY
     Route: 048
  4. METFORMIN [Concomitant]
     Active Substance: METFORMIN HYDROCHLORIDE
     Indication: DIABETES MELLITUS
     Dosage: 1000 MG, 1X/DAY (DAILY)
     Route: 065
  5. ATORVASTATIN [Concomitant]
     Active Substance: ATORVASTATIN
     Indication: DYSLIPIDAEMIA
     Dosage: 20.0MG UNKNOWN
     Route: 065
  6. FUROSEMIDE. [Suspect]
     Active Substance: FUROSEMIDE
     Indication: HYPERTENSION
     Dosage: 40 MG, QD
     Route: 065
  7. OLMESARTAN MEDOXOMIL. [Suspect]
     Active Substance: OLMESARTAN MEDOXOMIL
     Indication: HYPERTENSION
     Dosage: 10 MG, QD
     Route: 065
  8. OLMESARTAN MEDOXOMIL. [Suspect]
     Active Substance: OLMESARTAN MEDOXOMIL
     Dosage: 10 MG, 1X/DAY
     Route: 065

REACTIONS (6)
  - Renal failure [Recovering/Resolving]
  - Atrioventricular block [Recovered/Resolved]
  - Bradycardia [Recovered/Resolved]
  - Hyperkalaemia [Recovered/Resolved]
  - Shock [Recovered/Resolved]
  - Hypotension [Unknown]
